FAERS Safety Report 10353793 (Version 2)
Quarter: 2014Q4

REPORT INFORMATION
  Report Type: Spontaneous
  Country: GB (occurrence: GB)
  Receive Date: 20140731
  Receipt Date: 20141124
  Transmission Date: 20150528
  Serious: Yes (Other)
  Sender: FDA-Public Use
  Company Number: GB-TEVA-496288ISR

PATIENT
  Age: 50 Year
  Sex: Male
  Weight: 90 kg

DRUGS (9)
  1. CLOPIDOGREL [Concomitant]
     Active Substance: CLOPIDOGREL BISULFATE
     Dates: start: 20140331, end: 20140618
  2. LANSOPRAZOLE. [Concomitant]
     Active Substance: LANSOPRAZOLE
     Dates: start: 20140331
  3. METHYLPREDNISOLONE ACETATE. [Concomitant]
     Active Substance: METHYLPREDNISOLONE ACETATE
     Dates: start: 20140414, end: 20140415
  4. CILOSTAZOL. [Suspect]
     Active Substance: CILOSTAZOL
  5. ASPIRIN. [Concomitant]
     Active Substance: ASPIRIN
     Dates: start: 20140331
  6. METHYLPREDNISOLONE ACETATE. [Concomitant]
     Active Substance: METHYLPREDNISOLONE ACETATE
     Dates: start: 20140613, end: 20140614
  7. LIDOCAINE. [Concomitant]
     Active Substance: LIDOCAINE
     Dates: start: 20140613, end: 20140614
  8. ATORVASTATIN [Concomitant]
     Active Substance: ATORVASTATIN
     Dates: start: 20140331
  9. BISOPROLOL [Concomitant]
     Active Substance: BISOPROLOL
     Dates: start: 20140331

REACTIONS (3)
  - Tendonitis [Recovering/Resolving]
  - Tachycardia [Unknown]
  - Headache [Unknown]

NARRATIVE: CASE EVENT DATE: 20140628
